FAERS Safety Report 9828473 (Version 1)
Quarter: 2013Q4

REPORT INFORMATION
  Report Type: Spontaneous
  Country: US (occurrence: None)
  Receive Date: 20131120
  Receipt Date: 20131120
  Transmission Date: 20140711
  Serious: Yes (Other)
  Sender: FDA-Public Use
  Company Number: 1000050339

PATIENT
  Age: 29 Year
  Sex: Female

DRUGS (2)
  1. VIIBRYD [Suspect]
     Indication: ANXIETY
     Dosage: 20 MG (20 MG, 1 IN 1 D), ORAL
     Route: 048
     Dates: start: 201309
  2. VIIBRYD [Suspect]
     Indication: POSTPARTUM DISORDER
     Dosage: 20 MG (20 MG, 1 IN 1 D), ORAL
     Route: 048
     Dates: start: 201309

REACTIONS (5)
  - Insomnia [None]
  - Paraesthesia [None]
  - Anxiety [None]
  - Sleep paralysis [None]
  - Off label use [None]
